FAERS Safety Report 21410213 (Version 4)
Quarter: 2023Q1

REPORT INFORMATION
  Report Type: Spontaneous
  Country: US (occurrence: US)
  Receive Date: 20221005
  Receipt Date: 20230106
  Transmission Date: 20230418
  Serious: No
  Sender: FDA-Public Use
  Company Number: US-ALLERGAN-2224935US

PATIENT
  Sex: Female

DRUGS (4)
  1. QULIPTA [Suspect]
     Active Substance: ATOGEPANT
     Indication: Migraine
     Dosage: 30 MG, QD
     Route: 048
     Dates: start: 20220721, end: 20220906
  2. QULIPTA [Suspect]
     Active Substance: ATOGEPANT
     Dosage: UNK
     Dates: start: 20220425, end: 2022
  3. UBRELVY [Suspect]
     Active Substance: UBROGEPANT
     Indication: Migraine
     Dosage: UNK
     Dates: start: 20220215
  4. BOTOX [Concomitant]
     Active Substance: ONABOTULINUMTOXINA
     Dosage: UNK
     Dates: start: 20220609

REACTIONS (2)
  - Nausea [Unknown]
  - Drug ineffective [Unknown]

NARRATIVE: CASE EVENT DATE: 20220101
